FAERS Safety Report 10745237 (Version 1)
Quarter: 2015Q1

REPORT INFORMATION
  Report Type: Spontaneous
  Country: US (occurrence: None)
  Receive Date: 20150127
  Receipt Date: 20150127
  Transmission Date: 20150721
  Serious: Yes (Death)
  Sender: FDA-Public Use
  Company Number: None

PATIENT
  Age: 23 Year
  Sex: Male
  Weight: 81.65 kg

DRUGS (1)
  1. VENLAFAXINE [Suspect]
     Active Substance: VENLAFAXINE HYDROCHLORIDE
     Indication: DEPRESSION
     Dosage: 1 ONCE DAILY, TAKEN BY MOUTH
     Route: 048

REACTIONS (6)
  - Nausea [None]
  - Insomnia [None]
  - Night sweats [None]
  - Depression [None]
  - Nightmare [None]
  - Completed suicide [None]

NARRATIVE: CASE EVENT DATE: 20131216
